FAERS Safety Report 5880156-4 (Version None)
Quarter: 2008Q3

REPORT INFORMATION
  Report Type: 
  Country: None (occurrence: None)
  Receive Date: 20080912
  Receipt Date: 20080903
  Transmission Date: 20090109
  Serious: Yes (Hospitalization)
  Sender: FDA-Public Use
  Company Number: AU-BAYER-200824867GPV

PATIENT
  Age: 64 Year
  Sex: Male

DRUGS (7)
  1. ULTRAVIST 370 [Suspect]
     Indication: COMPUTERISED TOMOGRAM
     Route: 040
     Dates: start: 20080501, end: 20080501
  2. ATACAND [Concomitant]
     Indication: AORTIC DISSECTION
     Dosage: AS USED: 20 MG
     Route: 048
  3. BETALOC /METOPROLOL TARTRATE [Concomitant]
     Indication: AORTIC DISSECTION
     Dosage: TOTAL DAILY DOSE: 200 MG
     Route: 048
  4. LEVOTHYROXINE SODIUM [Concomitant]
     Indication: HYPOTHYROIDISM
     Dosage: AS USED: 200 ?G
     Route: 048
  5. ADALAT OROS /NIFEDIPINE [Concomitant]
     Indication: HYPERTENSION
     Dosage: TOTAL DAILY DOSE: 120 MG
     Route: 048
  6. MINIPRESS [Concomitant]
     Indication: HYPERTENSION
     Dosage: TOTAL DAILY DOSE: 10 MG
     Route: 048
  7. MUCOMYST [Concomitant]
     Indication: RENAL IMPAIRMENT

REACTIONS (1)
  - IODINE UPTAKE INCREASED [None]
